FAERS Safety Report 18036188 (Version 2)
Quarter: 2020Q3

REPORT INFORMATION
  Report Type: Report from Study
  Country: None (occurrence: AU)
  Receive Date: 20200717
  Receipt Date: 20200918
  Transmission Date: 20201103
  Serious: Yes (Other)
  Sender: FDA-Public Use
  Company Number: AU-ABBVIE-20K-008-3485850-00

PATIENT
  Age: 67 Year
  Sex: Female
  Weight: 99.9 kg

DRUGS (4)
  1. METOPROLOL SANDOZ [Concomitant]
     Active Substance: METOPROLOL
     Indication: HYPERTENSION
     Route: 048
     Dates: start: 20140621
  2. INDAPAMIDE HEMIHYDRATE [Concomitant]
     Active Substance: INDAPAMIDE HEMIHYDRATE
     Indication: HYPERTENSION
     Route: 048
     Dates: start: 20141025
  3. SKYRIZI [Suspect]
     Active Substance: RISANKIZUMAB-RZAA
     Indication: PSORIASIS
     Dosage: 2X75MG
     Route: 058
     Dates: start: 20160816
  4. PERINDOPRIL ARGININE [Concomitant]
     Active Substance: PERINDOPRIL ARGININE
     Indication: HYPERTENSION
     Route: 048
     Dates: start: 20170621

REACTIONS (6)
  - Metastases to lymph nodes [Unknown]
  - Colon adenoma [Unknown]
  - Malignant polyp [Recovered/Resolved]
  - Colon dysplasia [Unknown]
  - Adenoma benign [Unknown]
  - Large intestine polyp [Unknown]

NARRATIVE: CASE EVENT DATE: 20191205
